FAERS Safety Report 8374784-4 (Version None)
Quarter: 2012Q2

REPORT INFORMATION
  Report Type: 
  Country: None (occurrence: None)
  Receive Date: 20120521
  Receipt Date: 20120502
  Transmission Date: 20120825
  Serious: No
  Sender: FDA-Public Use
  Company Number: US-ASTRAZENECA-2012SE28490

PATIENT
  Age: 51 Year
  Sex: Female
  Weight: 82.6 kg

DRUGS (7)
  1. LISINOPRIL [Suspect]
     Indication: CARDIAC DISORDER
     Route: 048
  2. SEROQUEL XR [Suspect]
     Route: 048
  3. METOPROLOL TARTRATE [Concomitant]
     Indication: BLOOD PRESSURE ABNORMAL
  4. NEURONTIN [Concomitant]
     Indication: NEURITIS
  5. ZOLOFT [Concomitant]
  6. LISINOPRIL [Suspect]
     Indication: BLOOD PRESSURE ABNORMAL
     Route: 048
  7. INDOMETHACIN [Concomitant]
     Indication: ANTIINFLAMMATORY THERAPY

REACTIONS (3)
  - FATIGUE [None]
  - INSOMNIA [None]
  - INTENTIONAL DRUG MISUSE [None]
